FAERS Safety Report 10032892 (Version 1)
Quarter: 2014Q1

REPORT INFORMATION
  Report Type: Spontaneous
  Country: US (occurrence: US)
  Receive Date: 20140324
  Receipt Date: 20140324
  Transmission Date: 20141002
  Serious: Yes (Death, Life-Threatening, Hospitalization)
  Sender: FDA-Public Use
  Company Number: US-ASTRAZENECA-2014SE19890

PATIENT
  Age: 65 Year
  Sex: Female

DRUGS (10)
  1. BRILINTA [Suspect]
     Indication: ACUTE MYOCARDIAL INFARCTION
     Route: 048
     Dates: start: 20140308, end: 20140308
  2. BRILINTA [Suspect]
     Indication: STENT PLACEMENT
     Route: 048
     Dates: start: 20140308, end: 20140308
  3. BRILINTA [Suspect]
     Indication: ACUTE MYOCARDIAL INFARCTION
     Route: 048
     Dates: start: 201403, end: 201403
  4. BRILINTA [Suspect]
     Indication: STENT PLACEMENT
     Route: 048
     Dates: start: 201403, end: 201403
  5. BRILINTA [Suspect]
     Indication: ACUTE MYOCARDIAL INFARCTION
     Route: 048
     Dates: start: 20140314, end: 20140314
  6. BRILINTA [Suspect]
     Indication: STENT PLACEMENT
     Route: 048
     Dates: start: 20140314, end: 20140314
  7. ASPIRIN [Concomitant]
     Dosage: UNKNOWN
  8. ATORVASTATIN [Concomitant]
     Dosage: UNKNOWN
  9. AMLODIPINE [Concomitant]
     Dosage: UNKNOWN
  10. CARVEDIOL [Concomitant]
     Dosage: UNKNOWN

REACTIONS (6)
  - Ventricle rupture [Fatal]
  - Acute myocardial infarction [Unknown]
  - Cardiac arrest [Unknown]
  - Device occlusion [Unknown]
  - Cardiac disorder [Unknown]
  - Electrocardiogram ST segment elevation [Unknown]
